FAERS Safety Report 5272325-1 (Version None)
Quarter: 2007Q1

REPORT INFORMATION
  Report Type: 
  Country: None (occurrence: None)
  Receive Date: 20070322
  Receipt Date: 20070315
  Transmission Date: 20070707
  Serious: Yes (Life-Threatening, Hospitalization, Disabling)
  Sender: FDA-Public Use
  Company Number: PHBS2007PT04672

PATIENT
  Age: 82 Year
  Sex: Female

DRUGS (5)
  1. PROMETAX [Suspect]
     Dosage: 6 MG/D
     Route: 048
     Dates: start: 20070125, end: 20070126
  2. DONEPEZIL HCL [Concomitant]
     Route: 065
     Dates: start: 20040101
  3. LORAZEPAM [Concomitant]
     Route: 065
     Dates: start: 20040101
  4. TOCOPHERYL ACETATE [Concomitant]
     Route: 065
     Dates: start: 20040101
  5. SERTRALINE [Concomitant]
     Route: 065
     Dates: start: 20040101

REACTIONS (2)
  - BRADYCARDIA [None]
  - LOSS OF CONSCIOUSNESS [None]
